FAERS Safety Report 9970719 (Version 1)
Quarter: 2014Q1

REPORT INFORMATION
  Report Type: Report from Study
  Country: US (occurrence: US)
  Receive Date: 20140306
  Receipt Date: 20140306
  Transmission Date: 20141002
  Serious: No
  Sender: FDA-Public Use
  Company Number: US-ABBVIE-13P-163-1149037-00

PATIENT
  Age: 66 Year
  Sex: Female

DRUGS (25)
  1. HUMIRA [Suspect]
     Indication: PSORIASIS
     Dates: start: 20130709
  2. SYNTHROID [Concomitant]
     Indication: PRODUCT USED FOR UNKNOWN INDICATION
     Dosage: 112MG DAILY
  3. NEXIUM [Concomitant]
     Indication: PRODUCT USED FOR UNKNOWN INDICATION
  4. DIAZIDE [Concomitant]
     Indication: PRODUCT USED FOR UNKNOWN INDICATION
     Dosage: 37.5MG DAILY
  5. CYMBALTA [Concomitant]
     Indication: PRODUCT USED FOR UNKNOWN INDICATION
  6. PROPRANOLOL [Concomitant]
     Indication: PRODUCT USED FOR UNKNOWN INDICATION
  7. ALTOPREV [Concomitant]
     Indication: PRODUCT USED FOR UNKNOWN INDICATION
     Dosage: 40MG DAILY
  8. OXYBUTYNIN [Concomitant]
     Indication: PRODUCT USED FOR UNKNOWN INDICATION
     Dosage: 10MG DAILY
  9. ASA [Concomitant]
     Indication: PRODUCT USED FOR UNKNOWN INDICATION
     Dosage: 81MG DAILY
  10. CLARITIN [Concomitant]
     Indication: PRODUCT USED FOR UNKNOWN INDICATION
  11. BLOOD SUGAR CONTOUR [Concomitant]
     Indication: PRODUCT USED FOR UNKNOWN INDICATION
  12. TACLONEX SCALP [Concomitant]
     Indication: PRODUCT USED FOR UNKNOWN INDICATION
     Dosage: DAILY
  13. CLOBEX [Concomitant]
     Indication: PRODUCT USED FOR UNKNOWN INDICATION
     Dosage: SPRAY
  14. VITAMIN D3 [Concomitant]
     Indication: PRODUCT USED FOR UNKNOWN INDICATION
  15. VITAMIN C [Concomitant]
     Indication: PRODUCT USED FOR UNKNOWN INDICATION
  16. ACETOMENOPHEN [Concomitant]
     Indication: PRODUCT USED FOR UNKNOWN INDICATION
  17. CYCLOBENZAPRINE [Concomitant]
     Indication: HEADACHE
  18. FLUCOTISONE [Concomitant]
     Indication: PRODUCT USED FOR UNKNOWN INDICATION
  19. VAIACYCLOVIR [Concomitant]
     Indication: STOMATITIS
  20. ALBUTEROL [Concomitant]
     Indication: SMOKE SENSITIVITY
  21. CLINDAMYCIN [Concomitant]
     Indication: PRODUCT USED FOR UNKNOWN INDICATION
  22. CLARITHROMYCIN [Concomitant]
     Indication: BRONCHITIS
  23. BENZONATE [Concomitant]
     Indication: COUGH
  24. EPI [Concomitant]
     Indication: SMOKE SENSITIVITY
  25. BENADRYL [Concomitant]
     Indication: SMOKE SENSITIVITY

REACTIONS (2)
  - Injection site pain [Recovering/Resolving]
  - Injection site pain [Recovering/Resolving]
